FAERS Safety Report 20913806 (Version 1)
Quarter: 2022Q2

REPORT INFORMATION
  Report Type: Other
  Country: SA (occurrence: None)
  Receive Date: 20220604
  Receipt Date: 20220604
  Transmission Date: 20220721
  Serious: Yes (Other)
  Sender: FDA-Public Use
  Company Number: SA-ROCHE-3111824

PATIENT

DRUGS (1)
  1. TOCILIZUMAB [Suspect]
     Active Substance: TOCILIZUMAB
     Indication: COVID-19
     Dosage: SINGLE DOSAGE OF 4-8 MG/KG BASED ON THE ACTUAL BODY WEIGHT (MAXIMUM 800 MG)
     Route: 042

REACTIONS (2)
  - Fungal infection [Unknown]
  - Off label use [Unknown]
